FAERS Safety Report 8490573-4 (Version None)
Quarter: 2012Q3

REPORT INFORMATION
  Report Type: 
  Country: None (occurrence: None)
  Receive Date: 20120705
  Receipt Date: 20120626
  Transmission Date: 20120928
  Serious: Yes (Other)
  Sender: FDA-Public Use
  Company Number: ES-ABBOTT-12P-144-0950009-00

PATIENT
  Age: 74 Year
  Sex: Male

DRUGS (1)
  1. PROCRIN DEPOT INJECTION [Suspect]
     Indication: PROSTATE CANCER
     Dosage: FIRST DOSE
     Route: 058
     Dates: start: 20120601, end: 20120601

REACTIONS (2)
  - RASH [None]
  - PRURITUS GENERALISED [None]
